FAERS Safety Report 12616351 (Version 1)
Quarter: 2016Q3

REPORT INFORMATION
  Report Type: Spontaneous
  Country: US (occurrence: US)
  Receive Date: 20160802
  Receipt Date: 20160802
  Transmission Date: 20161109
  Serious: No
  Sender: FDA-Public Use
  Company Number: US-PERRIGO-16US014640

PATIENT
  Age: 5 Year
  Sex: Male
  Weight: 22.68 kg

DRUGS (2)
  1. CETIRIZINE HYDROCHLORIDE. [Suspect]
     Active Substance: CETIRIZINE HYDROCHLORIDE
     Indication: EYE SWELLING
     Dosage: APPROXIMATELY 20 MG, SINGLE
     Route: 048
     Dates: start: 20160328, end: 20160328
  2. CETIRIZINE HYDROCHLORIDE. [Suspect]
     Active Substance: CETIRIZINE HYDROCHLORIDE
     Indication: EYE PRURITUS
     Dosage: 5 MG, QD
     Route: 048
     Dates: start: 20160327

REACTIONS (3)
  - No adverse event [Unknown]
  - Off label use [Unknown]
  - Accidental overdose [Recovered/Resolved]

NARRATIVE: CASE EVENT DATE: 20160327
